FAERS Safety Report 7948407-X (Version None)
Quarter: 2011Q4

REPORT INFORMATION
  Report Type: 
  Country: None (occurrence: None)
  Receive Date: 20111123
  Receipt Date: 20111111
  Transmission Date: 20120403
  Serious: Yes (Other)
  Sender: FDA-Public Use
  Company Number: 20110797

PATIENT
  Age: 73 Year
  Sex: Male
  Weight: 78 kg

DRUGS (1)
  1. VENOFER [Suspect]
     Indication: IRON DEFICIENCY ANAEMIA
     Dosage: 2ND DOSE, 2ML GIVEN INTRAVENOUS BOLUS
     Route: 040
     Dates: start: 20060801, end: 20060801

REACTIONS (2)
  - ABDOMINAL PAIN LOWER [None]
  - PERINEAL PAIN [None]
